FAERS Safety Report 21773327 (Version 1)
Quarter: 2022Q4

REPORT INFORMATION
  Report Type: Spontaneous
  Country: US (occurrence: None)
  Receive Date: 20221223
  Receipt Date: 20221223
  Transmission Date: 20230113
  Serious: Yes (Other)
  Sender: FDA-Public Use
  Company Number: 2022A409821

PATIENT
  Age: 72 Year
  Sex: Male
  Weight: 85.3 kg

DRUGS (1)
  1. TAGRISSO [Suspect]
     Active Substance: OSIMERTINIB
     Indication: Lung neoplasm malignant
     Route: 048
     Dates: start: 201909

REACTIONS (8)
  - Pulmonary mass [Unknown]
  - Total lung capacity decreased [Unknown]
  - Pneumonitis [Unknown]
  - Pneumonia [Unknown]
  - Cough [Unknown]
  - Rash [Unknown]
  - Diarrhoea [Not Recovered/Not Resolved]
  - Onychoclasis [Not Recovered/Not Resolved]

NARRATIVE: CASE EVENT DATE: 20190101
